FAERS Safety Report 7067724-1 (Version None)
Quarter: 2010Q4

REPORT INFORMATION
  Report Type: 
  Country: None (occurrence: None)
  Receive Date: 20101028
  Receipt Date: 20101025
  Transmission Date: 20110411
  Serious: Yes (Life-Threatening, Hospitalization, Other)
  Sender: FDA-Public Use
  Company Number: PHHY2010AU55301

PATIENT
  Sex: Female

DRUGS (6)
  1. CLOZARIL [Suspect]
     Indication: SCHIZOPHRENIA
     Dosage: 350 MG
     Route: 048
     Dates: start: 19950626
  2. CLOZARIL [Suspect]
     Dosage: UNK
  3. AMISULPRIDE [Suspect]
     Indication: SCHIZOPHRENIA
     Dosage: 400 MG, BID
     Route: 048
  4. VALPROATE SODIUM [Suspect]
     Indication: EPILEPSY
     Dosage: 400 MG, BID
     Route: 048
  5. ENDEP [Concomitant]
     Dosage: 25 MG, QD
     Route: 048
  6. METFORMIN [Concomitant]
     Dosage: 500 MG, BID
     Route: 048

REACTIONS (4)
  - ENDOTRACHEAL INTUBATION [None]
  - FEELING ABNORMAL [None]
  - LOSS OF CONSCIOUSNESS [None]
  - OVERDOSE [None]
